FAERS Safety Report 24578935 (Version 1)
Quarter: 2024Q4

REPORT INFORMATION
  Report Type: Spontaneous
  Country: DE (occurrence: DE)
  Receive Date: 20241105
  Receipt Date: 20241105
  Transmission Date: 20250115
  Serious: Yes (Other)
  Sender: AMGEN
  Company Number: DE-AMGEN-DEUSP2024215298

PATIENT
  Age: 64 Year
  Sex: Female

DRUGS (3)
  1. SOTORASIB [Suspect]
     Active Substance: SOTORASIB
     Indication: Meningeal neoplasm
     Dosage: UNK
     Route: 065
  2. SOTORASIB [Suspect]
     Active Substance: SOTORASIB
     Indication: K-ras gene mutation
  3. PREDNISOLONE [Concomitant]
     Active Substance: PREDNISOLONE
     Dosage: 250 MILLIGRAM, QD, FOR 5 DAYS WITH TAPER
     Route: 040

REACTIONS (3)
  - Meningeal neoplasm [Unknown]
  - Therapeutic product effect incomplete [Unknown]
  - Off label use [Unknown]
